FAERS Safety Report 10047097 (Version 2)
Quarter: 2014Q2

REPORT INFORMATION
  Report Type: Report from Study
  Country: US (occurrence: US)
  Receive Date: 20140331
  Receipt Date: 20140428
  Transmission Date: 20141212
  Serious: Yes (Other)
  Sender: FDA-Public Use
  Company Number: US-JNJFOC-20140312038

PATIENT
  Sex: Male
  Weight: 90.72 kg

DRUGS (8)
  1. ZYTIGA [Suspect]
     Indication: PROSTATE CANCER
     Dosage: 250MGX4
     Route: 048
     Dates: start: 20131209, end: 201402
  2. LUPRON [Concomitant]
     Indication: NEOPLASM MALIGNANT
     Route: 065
     Dates: start: 2009
  3. LUPRON [Concomitant]
     Indication: HORMONE REPLACEMENT THERAPY
     Route: 065
     Dates: start: 2009
  4. LIPITOR [Concomitant]
     Indication: BLOOD CHOLESTEROL
     Route: 048
  5. NEXIUM [Concomitant]
     Indication: GASTROOESOPHAGEAL REFLUX DISEASE
     Route: 048
     Dates: start: 2004
  6. TOPROL [Concomitant]
     Indication: HYPERTENSION
     Route: 048
     Dates: start: 1994
  7. ASPIRIN [Concomitant]
     Route: 048
     Dates: start: 1994
  8. CALCIUM [Concomitant]
     Route: 065

REACTIONS (2)
  - Metastases to spine [Not Recovered/Not Resolved]
  - Drug ineffective [Recovered/Resolved]
